FAERS Safety Report 8420927-3 (Version None)
Quarter: 2012Q2

REPORT INFORMATION
  Report Type: 
  Country: None (occurrence: None)
  Receive Date: 20120531
  Receipt Date: 20120519
  Transmission Date: 20120825
  Serious: Yes (Hospitalization)
  Sender: FDA-Public Use
  Company Number: 2012AP001606

PATIENT
  Age: 64 Year
  Sex: Female

DRUGS (5)
  1. ROMIPLOSTIM (ROMIPLOSTIM) [Suspect]
     Indication: VAGINAL DISCHARGE
  2. ROMIPLOSTIM (ROMIPLOSTIM) [Suspect]
     Indication: EPISTAXIS
  3. EPTIFIBATIDE [Suspect]
     Indication: PRODUCT USED FOR UNKNOWN INDICATION
  4. ACETYLSALICYLIC ACID SRT [Suspect]
     Indication: PRODUCT USED FOR UNKNOWN INDICATION
  5. CLOPIDEGREL [Suspect]
     Indication: PRODUCT USED FOR UNKNOWN INDICATION

REACTIONS (2)
  - CHEST PAIN [None]
  - THROMBOSIS IN DEVICE [None]
